FAERS Safety Report 9907781 (Version 2)
Quarter: 2014Q1

REPORT INFORMATION
  Report Type: Spontaneous
  Country: US (occurrence: US)
  Receive Date: 20140219
  Receipt Date: 20140331
  Transmission Date: 20141002
  Serious: No
  Sender: FDA-Public Use
  Company Number: US-BIOGENIDEC-2014BI007262

PATIENT
  Age: 71 Year
  Sex: Female

DRUGS (23)
  1. TECFIDERA [Suspect]
     Indication: MULTIPLE SCLEROSIS
     Route: 048
     Dates: start: 20140106
  2. AMPYRA [Concomitant]
  3. BACLOFEN [Concomitant]
  4. CALCIUM CITRATE [Concomitant]
  5. CRANBERRY [Concomitant]
  6. CYMBALTA [Concomitant]
  7. FERROUS GLUCONATE IRON [Concomitant]
  8. FISH OIL [Concomitant]
  9. FLINTSTONES COMPLETE [Concomitant]
  10. GABAPENTIN [Concomitant]
  11. IRON [Concomitant]
  12. LISINOPRIL [Concomitant]
  13. LOVASTATIN [Concomitant]
  14. MAGNESIUM [Concomitant]
  15. NITROFURANTOIN MACROCRYSTAL [Concomitant]
  16. OXYBUTYNIN CHLORIDE [Concomitant]
  17. TIZANIDINE HCL [Concomitant]
  18. TRIMETHOPRIM [Concomitant]
  19. TYLENOL [Concomitant]
  20. VITAMIN B COMPLEX [Concomitant]
  21. VITAMIN B12 [Concomitant]
  22. VITAMIN C [Concomitant]
  23. VITAMIN D [Concomitant]

REACTIONS (4)
  - Headache [Unknown]
  - Flushing [Unknown]
  - Pruritus [Unknown]
  - Rash [Unknown]
